FAERS Safety Report 7860625-8 (Version None)
Quarter: 2011Q4

REPORT INFORMATION
  Report Type: 
  Country: None (occurrence: None)
  Receive Date: 20111027
  Receipt Date: 20111017
  Transmission Date: 20120403
  Serious: Yes (Other)
  Sender: FDA-Public Use
  Company Number: US-PURDUE-USA-2011-0076313

PATIENT
  Sex: Male

DRUGS (2)
  1. OXYCONTIN [Suspect]
     Indication: DRUG DEPENDENCE
     Dosage: 3 DF, DAILY
  2. ROXICODONE [Suspect]
     Indication: DRUG DEPENDENCE
     Dosage: 20 DF, DAILY

REACTIONS (6)
  - DRUG DEPENDENCE [None]
  - DRUG ABUSE [None]
  - PAIN [None]
  - DRUG ABUSER [None]
  - HEPATITIS C [None]
  - WEIGHT DECREASED [None]
